FAERS Safety Report 7549528-6 (Version None)
Quarter: 2011Q2

REPORT INFORMATION
  Report Type: 
  Country: None (occurrence: None)
  Receive Date: 20110615
  Receipt Date: 20110519
  Transmission Date: 20111010
  Serious: Yes (Other)
  Sender: FDA-Public Use
  Company Number: A0772926A

PATIENT
  Age: 54 Year
  Sex: Female
  Weight: 77.2 kg

DRUGS (10)
  1. CIMETIDINE [Concomitant]
  2. DEXAMETHASONE [Concomitant]
  3. PALONOSETRON [Concomitant]
  4. PACLITAXEL [Suspect]
     Indication: BREAST CANCER
     Dosage: 80MGM2 WEEKLY
     Route: 042
     Dates: start: 20090127
  5. FERROUS SULFATE TAB [Concomitant]
  6. DIPHENHYDRAMINE HCL [Concomitant]
  7. MAGNESIUM SULFATE [Concomitant]
  8. PRILOSEC [Suspect]
  9. MULTI-VITAMIN [Concomitant]
  10. LAPATINIB [Suspect]
     Indication: BREAST CANCER
     Dosage: 1500MG PER DAY
     Route: 048
     Dates: start: 20090127

REACTIONS (8)
  - BLOOD ALKALINE PHOSPHATASE ABNORMAL [None]
  - ALANINE AMINOTRANSFERASE INCREASED [None]
  - DIARRHOEA [None]
  - ABDOMINAL PAIN [None]
  - GALLBLADDER DISORDER [None]
  - HEPATOMEGALY [None]
  - ASPARTATE AMINOTRANSFERASE INCREASED [None]
  - BILIARY DILATATION [None]
